FAERS Safety Report 6128904-2 (Version None)
Quarter: 2009Q1

REPORT INFORMATION
  Report Type: 
  Country: None (occurrence: None)
  Receive Date: 20090320
  Receipt Date: 20090306
  Transmission Date: 20090719
  Serious: Yes (Other)
  Sender: FDA-Public Use
  Company Number: A-US2005-09249

PATIENT
  Age: 46 Year
  Sex: Female

DRUGS (6)
  1. TRACLEER [Suspect]
     Indication: PULMONARY ARTERIAL HYPERTENSION
     Dosage: 62.5 MG, BID, ORAL; 62 MG, OD, ORAL; 62 MG, BID, ORAL
     Route: 048
     Dates: start: 20040607, end: 20080908
  2. TRACLEER [Suspect]
     Indication: PULMONARY ARTERIAL HYPERTENSION
     Dosage: 62.5 MG, BID, ORAL; 62 MG, OD, ORAL; 62 MG, BID, ORAL
     Route: 048
     Dates: start: 20080909, end: 20080923
  3. TRACLEER [Suspect]
     Indication: PULMONARY ARTERIAL HYPERTENSION
     Dosage: 62.5 MG, BID, ORAL; 62 MG, OD, ORAL; 62 MG, BID, ORAL
     Route: 048
     Dates: start: 20081104, end: 20081230
  4. COUMADIN [Concomitant]
  5. FOLIC ACID [Concomitant]
  6. IRON (IRON) [Concomitant]

REACTIONS (4)
  - ALANINE AMINOTRANSFERASE INCREASED [None]
  - ASPARTATE AMINOTRANSFERASE INCREASED [None]
  - BLOOD BILIRUBIN INCREASED [None]
  - CHRONIC LYMPHOCYTIC LEUKAEMIA [None]
